FAERS Safety Report 16782373 (Version 4)
Quarter: 2020Q1

REPORT INFORMATION
  Report Type: Spontaneous
  Country: US (occurrence: US)
  Receive Date: 20190906
  Receipt Date: 20200130
  Transmission Date: 20200409
  Serious: Yes (Hospitalization)
  Sender: FDA-Public Use
  Company Number: US-BIOMARINAP-US-2019-125518

PATIENT
  Age: 30 Year
  Sex: Female
  Weight: 67.7 kg

DRUGS (1)
  1. VIMIZIM [Suspect]
     Active Substance: ELOSULFASE ALFA
     Indication: MUCOPOLYSACCHARIDOSIS IV
     Dosage: 140 MILLIGRAM, QW
     Route: 042
     Dates: start: 201608

REACTIONS (3)
  - Sepsis [Unknown]
  - Product dose omission [Unknown]
  - Device related infection [Recovered/Resolved]
